FAERS Safety Report 4423842-5 (Version None)
Quarter: 2004Q3

REPORT INFORMATION
  Report Type: 
  Country: None (occurrence: None)
  Receive Date: 20040714
  Receipt Date: 20030617
  Transmission Date: 20050211
  Serious: Yes (Hospitalization)
  Sender: FDA-Public Use
  Company Number: 200314962US

PATIENT
  Age: 60 Year
  Sex: Female

DRUGS (6)
  1. TAXOTERE [Suspect]
     Indication: BREAST CANCER METASTATIC
     Dosage: 75 MG/M**2 Q3W
  2. HYDROCHLOROTHIAZIDE [Concomitant]
  3. LOSARTAN POTASSIUM (HYZAAR) [Concomitant]
  4. ONDASETRON HYDROCHLORIDE (ZOFRAN) [Concomitant]
  5. ACETAMINOPHEN [Concomitant]
  6. HYDROCODONE  BITARTRATE (VICODIN) [Concomitant]

REACTIONS (3)
  - ABDOMINAL PAIN [None]
  - COLITIS ISCHAEMIC [None]
  - DIARRHOEA HAEMORRHAGIC [None]
